FAERS Safety Report 7539336-4 (Version None)
Quarter: 2011Q2

REPORT INFORMATION
  Report Type: 
  Country: None (occurrence: None)
  Receive Date: 20110610
  Receipt Date: 20110527
  Transmission Date: 20111010
  Serious: Yes (Other)
  Sender: FDA-Public Use
  Company Number: CA-JNJFOC-20100801260

PATIENT
  Sex: Female
  Weight: 55 kg

DRUGS (4)
  1. AERIUS [Concomitant]
     Route: 048
  2. SOLU-CORTEF [Concomitant]
     Route: 042
  3. TYLENOL-500 [Concomitant]
     Route: 048
  4. REMICADE [Suspect]
     Indication: CROHN'S DISEASE
     Route: 042
     Dates: start: 20060501

REACTIONS (3)
  - VOCAL CORD DISORDER [None]
  - APHONIA [None]
  - BRONCHITIS [None]
